FAERS Safety Report 4713358-0 (Version None)
Quarter: 2005Q3

REPORT INFORMATION
  Report Type: 
  Country: None (occurrence: None)
  Receive Date: 20050701
  Receipt Date: 20041213
  Transmission Date: 20060218
  Serious: Yes (Hospitalization)
  Sender: FDA-Public Use
  Company Number: US-2004-035106

PATIENT
  Age: 47 Year
  Sex: Female
  Weight: 71.7 kg

DRUGS (5)
  1. YASMIN [Suspect]
     Indication: MENORRHAGIA
     Dosage: 1 TAB(S), 1X/DAY, ORAL
     Route: 048
     Dates: start: 20040626, end: 20040826
  2. LORATADINE [Concomitant]
  3. FLONASE [Concomitant]
  4. IRON [Concomitant]
  5. DILTIAZEM [Concomitant]

REACTIONS (2)
  - NAUSEA [None]
  - PULMONARY EMBOLISM [None]
